FAERS Safety Report 23957392 (Version 1)
Quarter: 2024Q2

REPORT INFORMATION
  Report Type: Report from Study
  Country: CA (occurrence: CA)
  Receive Date: 20240610
  Receipt Date: 20240610
  Transmission Date: 20240716
  Serious: Yes (Other)
  Sender: FDA-Public Use
  Company Number: CA-ABBVIE-5788679

PATIENT
  Sex: Female

DRUGS (2)
  1. SKYRIZI [Suspect]
     Active Substance: RISANKIZUMAB-RZAA
     Indication: Crohn^s disease
     Route: 058
     Dates: start: 20230614
  2. TRAMADOL [Concomitant]
     Active Substance: TRAMADOL\TRAMADOL HYDROCHLORIDE
     Indication: Product used for unknown indication

REACTIONS (15)
  - Coma [Unknown]
  - Decreased appetite [Unknown]
  - Depression [Unknown]
  - Fall [Unknown]
  - Pain [Unknown]
  - Stress [Unknown]
  - Depressed mood [Unknown]
  - Paresis [Unknown]
  - Cerebrovascular accident [Unknown]
  - Head injury [Not Recovered/Not Resolved]
  - Anger [Unknown]
  - Arthralgia [Not Recovered/Not Resolved]
  - Fibromyalgia [Unknown]
  - Sjogren^s syndrome [Unknown]
  - Prescription drug used without a prescription [Unknown]
